FAERS Safety Report 5804519-8 (Version None)
Quarter: 2008Q3

REPORT INFORMATION
  Report Type: 
  Country: None (occurrence: None)
  Receive Date: 20080707
  Receipt Date: 20080707
  Transmission Date: 20090109
  Serious: Yes (Other)
  Sender: FDA-Public Use
  Company Number: None

PATIENT
  Age: 36 Year
  Sex: Female
  Weight: 83.4619 kg

DRUGS (1)
  1. ENBREL [Suspect]
     Indication: RHEUMATOID ARTHRITIS
     Dosage: 1 PEN INJECTION WEEKLY SQ
     Route: 058
     Dates: start: 20080301, end: 20080605

REACTIONS (4)
  - BRONCHITIS [None]
  - MALAISE [None]
  - PNEUMONIA [None]
  - SINUSITIS [None]
